FAERS Safety Report 7738949-4 (Version None)
Quarter: 2011Q3

REPORT INFORMATION
  Report Type: 
  Country: None (occurrence: None)
  Receive Date: 20110909
  Receipt Date: 20110830
  Transmission Date: 20111222
  Serious: No
  Sender: FDA-Public Use
  Company Number: US-BIOGENIDEC-2011BI027076

PATIENT
  Age: 63 Year
  Sex: Male

DRUGS (3)
  1. AVONEX [Concomitant]
     Indication: MULTIPLE SCLEROSIS
     Route: 030
  2. TYSABRI [Suspect]
     Indication: MULTIPLE SCLEROSIS
     Route: 042
     Dates: start: 20090624
  3. TYSABRI [Suspect]
     Route: 042
     Dates: start: 20070810, end: 20080529

REACTIONS (3)
  - MUSCLE SPASMS [None]
  - CATHETER PLACEMENT [None]
  - CYSTITIS [None]
